FAERS Safety Report 5423681-2 (Version None)
Quarter: 2007Q3

REPORT INFORMATION
  Report Type: 
  Country: None (occurrence: None)
  Receive Date: 20070823
  Receipt Date: 20070813
  Transmission Date: 20080115
  Serious: Yes (Hospitalization)
  Sender: FDA-Public Use
  Company Number: B0483810A

PATIENT
  Age: 70 Year
  Sex: Female

DRUGS (8)
  1. ARIXTRA [Suspect]
     Indication: DRUG USE FOR UNKNOWN INDICATION
     Dosage: 2.5MG PER DAY
     Route: 058
     Dates: start: 20070428, end: 20070512
  2. DAFALGAN [Suspect]
     Dosage: 2TAB PER DAY
     Route: 048
     Dates: start: 20070507, end: 20070516
  3. ZELITREX [Concomitant]
  4. BACTRIM DS [Concomitant]
  5. DEXAMETHASONE 0.5MG TAB [Concomitant]
  6. LEDERFOLINE [Concomitant]
  7. ARANESP [Concomitant]
  8. RADIOTHERAPY [Concomitant]
     Dates: start: 20070503, end: 20070516

REACTIONS (1)
  - AGRANULOCYTOSIS [None]
